FAERS Safety Report 9693699 (Version 2)
Quarter: 2013Q4

REPORT INFORMATION
  Report Type: Spontaneous
  Country: US (occurrence: US)
  Receive Date: 20131118
  Receipt Date: 20131122
  Transmission Date: 20140711
  Serious: Yes (Death, Other)
  Sender: FDA-Public Use
  Company Number: US-GILEAD-2013-0088025

PATIENT
  Sex: Female

DRUGS (3)
  1. LETAIRIS [Suspect]
     Indication: PULMONARY HYPERTENSION
     Dosage: 10 MG, QD
     Route: 048
     Dates: start: 20120815
  2. LETAIRIS [Suspect]
     Indication: SCLERODERMA
  3. WARFARIN [Concomitant]

REACTIONS (2)
  - Septic shock [Fatal]
  - Large intestine perforation [Fatal]
